FAERS Safety Report 21010892 (Version 3)
Quarter: 2023Q1

REPORT INFORMATION
  Report Type: Spontaneous
  Country: US (occurrence: US)
  Receive Date: 20220627
  Receipt Date: 20230321
  Transmission Date: 20230417
  Serious: No
  Sender: FDA-Public Use
  Company Number: US-Blueprint Medicines Corporation-210

PATIENT
  Sex: Female

DRUGS (3)
  1. AYVAKIT [Suspect]
     Active Substance: AVAPRITINIB
     Indication: Systemic mastocytosis
     Route: 065
     Dates: start: 20220613
  2. AYVAKIT [Suspect]
     Active Substance: AVAPRITINIB
     Indication: Multiple sclerosis
     Route: 065
     Dates: start: 20220613
  3. AYVAKIT [Suspect]
     Active Substance: AVAPRITINIB
     Indication: Rheumatoid arthritis
     Route: 065
     Dates: start: 20220613

REACTIONS (10)
  - Dysphonia [Unknown]
  - Hordeolum [Unknown]
  - Eye discharge [Unknown]
  - Lacrimation increased [Unknown]
  - Amnesia [Unknown]
  - Swelling face [Not Recovered/Not Resolved]
  - Periorbital swelling [Unknown]
  - Memory impairment [Unknown]
  - Off label use [Unknown]
  - Product dose omission issue [Unknown]
